FAERS Safety Report 5993754-4 (Version None)
Quarter: 2008Q4

REPORT INFORMATION
  Report Type: 
  Country: None (occurrence: None)
  Receive Date: 20081212
  Receipt Date: 20081201
  Transmission Date: 20090506
  Serious: No
  Sender: FDA-Public Use
  Company Number: BR-ASTRAZENECA-2008UW26827

PATIENT
  Age: 56 Year
  Sex: Male
  Weight: 74 kg

DRUGS (4)
  1. FULCIN [Suspect]
     Route: 048
     Dates: start: 20080914, end: 20081114
  2. SIMVASTATIN [Concomitant]
     Indication: HYPERCHOLESTEROLAEMIA
  3. ASPIRIN [Concomitant]
     Indication: HYPERTENSION
  4. FUROSEMIDE [Concomitant]
     Indication: HYPERTENSION
     Route: 048
     Dates: start: 20040101

REACTIONS (2)
  - DRY MOUTH [None]
  - ORAL MUCOSAL DISCOLOURATION [None]
